FAERS Safety Report 6024847-3 (Version None)
Quarter: 2008Q4

REPORT INFORMATION
  Report Type: 
  Country: None (occurrence: None)
  Receive Date: 20081229
  Receipt Date: 20081212
  Transmission Date: 20090506
  Serious: Yes (Death, Hospitalization)
  Sender: FDA-Public Use
  Company Number: JPI-P-005699

PATIENT
  Age: 23 Year
  Sex: Female

DRUGS (2)
  1. LUVOX [Suspect]
     Indication: DEPRESSION
     Dosage: 50 MG (25 MG, 2 IN 1 D), ORAL
     Route: 048
     Dates: start: 20080301, end: 20080101
  2. ETHYL  LOFLAZEPATE [Concomitant]

REACTIONS (7)
  - ACNE [None]
  - ANOREXIA [None]
  - COMPLETED SUICIDE [None]
  - IMPULSE-CONTROL DISORDER [None]
  - IMPULSIVE BEHAVIOUR [None]
  - INCORRECT DOSE ADMINISTERED [None]
  - WEIGHT DECREASED [None]
